FAERS Safety Report 14230433 (Version 1)
Quarter: 2017Q4

REPORT INFORMATION
  Report Type: Spontaneous
  Country: US (occurrence: US)
  Receive Date: 20171128
  Receipt Date: 20171128
  Transmission Date: 20180321
  Serious: Yes (Death)
  Sender: FDA-Public Use
  Company Number: US-PFIZER INC-2017507073

PATIENT
  Age: 33 Year
  Sex: Female

DRUGS (1)
  1. MISOPROSTOL. [Suspect]
     Active Substance: MISOPROSTOL
     Indication: ABORTION INDUCED
     Dosage: 800 UG, UNK
     Route: 067

REACTIONS (3)
  - Clostridium difficile infection [Fatal]
  - Product use in unapproved indication [Fatal]
  - Intrauterine infection [Fatal]
